FAERS Safety Report 9331060 (Version 8)
Quarter: 2013Q3

REPORT INFORMATION
  Report Type: Spontaneous
  Country: US (occurrence: US)
  Receive Date: 20130605
  Receipt Date: 20130930
  Transmission Date: 20140515
  Serious: No
  Sender: FDA-Public Use
  Company Number: US-009507513-1306USA001619

PATIENT
  Sex: Female

DRUGS (2)
  1. PEGINTRON [Suspect]
     Indication: CHRONIC HEPATITIS C
     Dosage: REDIPEN
     Dates: start: 20130502
  2. REBETOL [Suspect]
     Indication: CHRONIC HEPATITIS C
     Dosage: UNK
     Route: 048
     Dates: start: 20130502

REACTIONS (15)
  - Stress [Unknown]
  - Memory impairment [Unknown]
  - Injection site haemorrhage [Recovered/Resolved]
  - Neck pain [Unknown]
  - Dyspepsia [Unknown]
  - Dyspepsia [Recovered/Resolved]
  - Memory impairment [Unknown]
  - Blood potassium decreased [Recovered/Resolved]
  - Fatigue [Unknown]
  - Headache [Recovered/Resolved]
  - Dizziness [Recovered/Resolved]
  - Chest pain [Unknown]
  - Dizziness [Unknown]
  - Chest pain [Unknown]
  - Contusion [Unknown]
